FAERS Safety Report 11159737 (Version 1)
Quarter: 2015Q2

REPORT INFORMATION
  Report Type: Spontaneous
  Country: US (occurrence: None)
  Receive Date: 20150602
  Receipt Date: 20150602
  Transmission Date: 20150821
  Serious: Yes (Disabling)
  Sender: FDA-Public Use
  Company Number: None

PATIENT
  Age: 74 Year
  Sex: Female
  Weight: 62.6 kg

DRUGS (22)
  1. VITAMIN D [Concomitant]
     Active Substance: CHOLECALCIFEROL
  2. DYMISTA [Concomitant]
     Active Substance: AZELASTINE HYDROCHLORIDE\FLUTICASONE PROPIONATE
  3. L-GLUTAMINE [Concomitant]
  4. MAGNESIUM [Concomitant]
     Active Substance: MAGNESIUM
  5. FORTEO [Suspect]
     Active Substance: TERIPARATIDE
     Indication: SPINAL COMPRESSION FRACTURE
     Dosage: GIVEN INTO/UNDER THE SKIN
  6. PREDNISONE. [Concomitant]
     Active Substance: PREDNISONE
  7. EX STRENGTH TYLENOL [Concomitant]
  8. NORFLEX [Concomitant]
     Active Substance: ORPHENADRINE CITRATE
  9. PEPTO BISMAL [Concomitant]
  10. TUMS [Concomitant]
     Active Substance: CALCIUM CARBONATE
  11. OCUVITE EYE SUPPLEMENT [Concomitant]
  12. BENADRYL [Concomitant]
     Active Substance: DIPHENHYDRAMINE HYDROCHLORIDE
  13. QD AURORA DERMABASE [Concomitant]
  14. CLINDOMYCIN [Concomitant]
  15. ACCUPUNCTURE CALCIUM CITRATE [Concomitant]
  16. CETIRIZINE [Concomitant]
     Active Substance: CETIRIZINE HYDROCHLORIDE
  17. VIT B-12 [Concomitant]
  18. FORTEO [Suspect]
     Active Substance: TERIPARATIDE
     Indication: OSTEOPOROSIS
     Dosage: GIVEN INTO/UNDER THE SKIN
  19. NEXIUM [Concomitant]
     Active Substance: ESOMEPRAZOLE MAGNESIUM
  20. AMBIAN [Concomitant]
  21. CALCIUM [Concomitant]
     Active Substance: CALCIUM
  22. CLINDOMYCIN [Concomitant]

REACTIONS (7)
  - Inflammation [None]
  - Muscle spasms [None]
  - Amnesia [None]
  - Fall [None]
  - Back pain [None]
  - Loss of consciousness [None]
  - Dizziness [None]

NARRATIVE: CASE EVENT DATE: 20150101
